FAERS Safety Report 6786327-7 (Version None)
Quarter: 2010Q2

REPORT INFORMATION
  Report Type: 
  Country: None (occurrence: None)
  Receive Date: 20100621
  Receipt Date: 20100621
  Transmission Date: 20101027
  Serious: Yes (Death)
  Sender: FDA-Public Use
  Company Number: None

PATIENT
  Sex: Female
  Weight: 42.6 kg

DRUGS (2)
  1. SAVELLA [Suspect]
     Indication: FIBROMYALGIA
     Dosage: 100MG TWO TIMES DAILY PO
     Route: 048
  2. AMPHETAMINE-DEXTROAMPHETAMINE-ADDERALL [Concomitant]

REACTIONS (3)
  - CARDIOVASCULAR DISORDER [None]
  - GASTROINTESTINAL NECROSIS [None]
  - MESENTERIC ARTERY THROMBOSIS [None]
